FAERS Safety Report 16468116 (Version 2)
Quarter: 2019Q4

REPORT INFORMATION
  Report Type: Report from Study
  Country: BR (occurrence: BR)
  Receive Date: 20190624
  Receipt Date: 20191020
  Transmission Date: 20200122
  Serious: Yes (Other)
  Sender: FDA-Public Use
  Company Number: PHHY2018BR193465

PATIENT
  Age: 49 Year
  Sex: Male
  Weight: 83 kg

DRUGS (2)
  1. COSENTYX [Suspect]
     Active Substance: SECUKINUMAB
     Indication: PSORIATIC ARTHROPATHY
     Dosage: 300 MG, QMO
     Route: 058
     Dates: start: 20171121, end: 20181212
  2. COSENTYX [Suspect]
     Active Substance: SECUKINUMAB
     Dosage: UNK
     Route: 065
     Dates: start: 20190608

REACTIONS (16)
  - Secretion discharge [Recovered/Resolved]
  - Obstructive airways disorder [Recovered/Resolved]
  - Bronchitis [Not Recovered/Not Resolved]
  - Asthenia [Recovered/Resolved]
  - Fatigue [Recovered/Resolved]
  - Upper respiratory tract infection [Unknown]
  - Hypersensitivity [Unknown]
  - Malaise [Recovered/Resolved]
  - Influenza [Recovered/Resolved]
  - Cough [Recovered/Resolved]
  - Dyspnoea [Recovered/Resolved]
  - Haemorrhage [Unknown]
  - Musculoskeletal chest pain [Recovered/Resolved]
  - Sinusitis [Recovered/Resolved]
  - Body height decreased [Unknown]
  - Fall [Unknown]

NARRATIVE: CASE EVENT DATE: 20190606
